FAERS Safety Report 12724397 (Version 1)
Quarter: 2016Q3

REPORT INFORMATION
  Report Type: Spontaneous
  Country: DE (occurrence: DE)
  Receive Date: 20160908
  Receipt Date: 20160908
  Transmission Date: 20161109
  Serious: Yes (Other)
  Sender: FDA-Public Use
  Company Number: DE-009507513-1608DEU015441

PATIENT

DRUGS (1)
  1. CELESTAN [Suspect]
     Active Substance: BETAMETHASONE
     Dosage: RANGING FROM 2?8 MG(LESS THAN OR EQUAL TO 16 MG) OR2?12MG(24MG)GIVEN ONCE DURING PREGNANCY TO REPEAT
     Route: 064

REACTIONS (5)
  - Head circumference abnormal [Unknown]
  - Foetal growth restriction [Unknown]
  - Foetal exposure during pregnancy [Recovered/Resolved]
  - Low birth weight baby [Unknown]
  - Small for dates baby [Unknown]
